FAERS Safety Report 20204450 (Version 1)
Quarter: 2021Q4

REPORT INFORMATION
  Report Type: Spontaneous
  Country: GB (occurrence: GB)
  Receive Date: 20211220
  Receipt Date: 20211220
  Transmission Date: 20220303
  Serious: Yes (Hospitalization)
  Sender: FDA-Public Use
  Company Number: GB-TEVA-2021-GB-1989499

PATIENT
  Age: 32 Year
  Sex: Male

DRUGS (2)
  1. PREDNISOLONE [Suspect]
     Active Substance: PREDNISOLONE
     Indication: Pulmonary sarcoidosis
     Dosage: 30 MILLIGRAM DAILY; FOLLOWED BY A GRADUAL TAPERING
     Route: 048
  2. PREDNISOLONE [Suspect]
     Active Substance: PREDNISOLONE
     Indication: Gastrointestinal disorder
     Dosage: 40 MILLIGRAM DAILY;
     Route: 048

REACTIONS (2)
  - Giardiasis [Recovered/Resolved]
  - Strongyloidiasis [Recovered/Resolved]
